FAERS Safety Report 8105256-X (Version None)
Quarter: 2012Q1

REPORT INFORMATION
  Report Type: 
  Country: None (occurrence: None)
  Receive Date: 20120201
  Receipt Date: 20120123
  Transmission Date: 20120608
  Serious: Yes (Other)
  Sender: FDA-Public Use
  Company Number: US-JNJFOC-20120109826

PATIENT
  Sex: Female
  Weight: 60.33 kg

DRUGS (7)
  1. LOPRESSOR [Concomitant]
     Indication: HEART RATE
     Route: 048
     Dates: start: 20111205
  2. ARAVA [Concomitant]
     Indication: ARTHRITIS
     Route: 048
  3. OMEPRAZOLE [Concomitant]
     Indication: GASTROINTESTINAL DISORDER THERAPY
     Route: 048
  4. PREDNISOLONE [Concomitant]
     Indication: ARTHRITIS
  5. ASPIRIN [Concomitant]
     Indication: THROMBOSIS
     Route: 048
     Dates: start: 20111205
  6. XARELTO [Suspect]
     Indication: ATRIAL FIBRILLATION
     Route: 048
     Dates: start: 20120105
  7. FUROSEMIDE [Concomitant]
     Indication: CARDIAC FAILURE CONGESTIVE
     Dates: start: 20120105

REACTIONS (4)
  - EYE SWELLING [None]
  - SKIN DISCOLOURATION [None]
  - MEMORY IMPAIRMENT [None]
  - PRURITUS [None]
